FAERS Safety Report 17550827 (Version 1)
Quarter: 2020Q1

REPORT INFORMATION
  Report Type: Spontaneous
  Country: US (occurrence: US)
  Receive Date: 20200317
  Receipt Date: 20200317
  Transmission Date: 20200409
  Serious: Yes (Hospitalization)
  Sender: FDA-Public Use
  Company Number: US-PFIZER INC-2020113253

PATIENT
  Age: 60 Year
  Sex: Female
  Weight: 66.68 kg

DRUGS (2)
  1. NIFEDIPINE. [Suspect]
     Active Substance: NIFEDIPINE
     Indication: HYPERTENSION
     Dosage: 30 MG, 2X/DAY (TAKE 1 IN MORNING AND 1 IN AFTERNOON )
     Route: 048
  2. DIOVAN [Concomitant]
     Active Substance: VALSARTAN
     Indication: HYPERTENSION
     Dosage: 165 MG, DAILY

REACTIONS (5)
  - Flushing [Unknown]
  - Cardiac disorder [Unknown]
  - Arrhythmia [Recovered/Resolved]
  - Dyspnoea [Unknown]
  - Ventricular extrasystoles [Unknown]

NARRATIVE: CASE EVENT DATE: 201907
